FAERS Safety Report 9929175 (Version 1)
Quarter: 2014Q1

REPORT INFORMATION
  Report Type: Report from Study
  Country: CZ (occurrence: CZ)
  Receive Date: 20140227
  Receipt Date: 20140227
  Transmission Date: 20141002
  Serious: Yes (Other)
  Sender: FDA-Public Use
  Company Number: PHHY2014CZ022808

PATIENT
  Age: 57 Year
  Sex: Female

DRUGS (9)
  1. FTY 720 [Suspect]
     Indication: MULTIPLE SCLEROSIS
     Dosage: 0.5 MG, QD
     Route: 048
     Dates: start: 20130812, end: 20131106
  2. VESICARE [Concomitant]
     Indication: URINARY TRACT DISORDER
     Dosage: 5 MG, QD
     Route: 048
     Dates: start: 20110610
  3. BACLOFEN [Concomitant]
     Indication: MUSCLE SPASTICITY
     Dosage: 10 MG, BID
     Route: 048
     Dates: start: 20080409
  4. NEURONTIN [Concomitant]
     Indication: PARAESTHESIA
     Dosage: 300 MG, BID
     Route: 048
     Dates: start: 20110629
  5. APO-CITALOPRAM [Concomitant]
     Indication: DEPRESSION
     Dosage: 20 MG, QD
     Route: 048
     Dates: start: 20080409
  6. CALTRATE [Concomitant]
     Indication: OSTEOPOROSIS
     Dosage: 600 MG, QD
     Route: 048
     Dates: start: 20080409
  7. EUTHYROX [Concomitant]
     Indication: HYPOTHYROIDISM
     Dosage: 50 UG, QD
     Route: 048
     Dates: start: 20050714
  8. PRESTARIUM [Concomitant]
     Indication: HYPERTENSION
     Dosage: 5 MG, QD
     Route: 048
     Dates: start: 20120712
  9. TENAXUM [Concomitant]
     Indication: HYPERTENSION
     Dosage: 1 MG, BID
     Route: 048
     Dates: start: 20120712

REACTIONS (2)
  - Arthralgia [Recovering/Resolving]
  - Myalgia [Recovering/Resolving]
